FAERS Safety Report 10088523 (Version 1)
Quarter: 2014Q2

REPORT INFORMATION
  Report Type: Spontaneous
  Country: US (occurrence: US)
  Receive Date: 20140421
  Receipt Date: 20140421
  Transmission Date: 20141212
  Serious: No
  Sender: FDA-Public Use
  Company Number: US-BIOGENIDEC-2014BI032060

PATIENT
  Age: 40 Year
  Sex: Female

DRUGS (7)
  1. TECFIDERA [Suspect]
     Indication: MULTIPLE SCLEROSIS
     Route: 048
     Dates: start: 20130531
  2. DIAZEPAM [Concomitant]
  3. DULOXETINE [Concomitant]
  4. METHIMAZOLE [Concomitant]
  5. ATENOLOL [Concomitant]
  6. LISINOPRIL [Concomitant]
  7. VESICARE [Concomitant]

REACTIONS (2)
  - Influenza like illness [Unknown]
  - Insomnia [Unknown]
